FAERS Safety Report 8579633-7 (Version None)
Quarter: 2012Q3

REPORT INFORMATION
  Report Type: 
  Country: None (occurrence: None)
  Receive Date: 20120808
  Receipt Date: 20120806
  Transmission Date: 20120928
  Serious: Yes (Hospitalization, Other)
  Sender: FDA-Public Use
  Company Number: AU-BAYER-2012-079415

PATIENT
  Age: 65 Year
  Sex: Female

DRUGS (2)
  1. ULTRAVIST 150 [Suspect]
     Indication: COMPUTERISED TOMOGRAM ABDOMEN
     Dosage: 100 ML, ONCE
     Route: 042
     Dates: start: 20120806, end: 20120806
  2. ULTRAVIST 150 [Suspect]
     Indication: COMPUTERISED TOMOGRAM THORAX

REACTIONS (2)
  - RESPIRATORY RATE INCREASED [None]
  - URTICARIA [None]
